FAERS Safety Report 4571761-6 (Version None)
Quarter: 2005Q1

REPORT INFORMATION
  Report Type: 
  Country: None (occurrence: None)
  Receive Date: 20050202
  Receipt Date: 20050202
  Transmission Date: 20050727
  Serious: Yes (Hospitalization)
  Sender: FDA-Public Use
  Company Number: None

PATIENT
  Age: 69 Year
  Sex: Male
  Weight: 117.4816 kg

DRUGS (2)
  1. IRBESARTAN     300 MG [Suspect]
     Indication: HYPERTENSION
     Dosage: 300 MG   Q DAY   ORAL
     Route: 048
     Dates: start: 20041221, end: 20050125
  2. LISINOPRIL [Suspect]
     Dosage: 20 MG    Q DAY    ORAL
     Route: 048
     Dates: start: 20040914, end: 20050125

REACTIONS (1)
  - SWOLLEN TONGUE [None]
